FAERS Safety Report 14881642 (Version 2)
Quarter: 2018Q2

REPORT INFORMATION
  Report Type: Spontaneous
  Country: KR (occurrence: KR)
  Receive Date: 20180511
  Receipt Date: 20180529
  Transmission Date: 20180711
  Serious: Yes (Hospitalization, Other)
  Sender: FDA-Public Use
  Company Number: KR-BAYER-2018-086746

PATIENT
  Age: 73 Year
  Sex: Male

DRUGS (1)
  1. ASPIRIN. [Suspect]
     Active Substance: ASPIRIN
     Dosage: 100 MG, QD

REACTIONS (7)
  - Central nervous system lesion [None]
  - Muscular weakness [None]
  - Balance disorder [None]
  - Fibrin D dimer increased [None]
  - Cardiac steatosis [None]
  - Musculoskeletal disorder [None]
  - Blood fibrinogen increased [None]
